FAERS Safety Report 5929529-1 (Version None)
Quarter: 2008Q4

REPORT INFORMATION
  Report Type: 
  Country: None (occurrence: None)
  Receive Date: 20081024
  Receipt Date: 20081017
  Transmission Date: 20090506
  Serious: Yes (Hospitalization)
  Sender: FDA-Public Use
  Company Number: B0539034A

PATIENT
  Age: 53 Year
  Sex: Male

DRUGS (5)
  1. VALTREX [Suspect]
     Indication: HERPES SIMPLEX
     Dosage: 500MG TWICE PER DAY
     Route: 048
     Dates: start: 20080910, end: 20080912
  2. NEORAL [Suspect]
     Indication: DERMATOMYOSITIS
     Dosage: 50MG TWICE PER DAY
     Route: 048
     Dates: start: 20080911
  3. PREDONINE [Suspect]
     Indication: DERMATOMYOSITIS
     Dosage: 17.5MG TWICE PER DAY
     Route: 048
     Dates: end: 20080911
  4. ASPARA K [Concomitant]
     Dosage: 900MG PER DAY
     Route: 048
     Dates: end: 20080910
  5. BONALON [Concomitant]
     Indication: OSTEOPOROSIS
     Route: 048

REACTIONS (1)
  - AGRANULOCYTOSIS [None]
